FAERS Safety Report 16637299 (Version 1)
Quarter: 2019Q3

REPORT INFORMATION
  Report Type: Spontaneous
  Country: US (occurrence: US)
  Receive Date: 20190726
  Receipt Date: 20190726
  Transmission Date: 20191004
  Serious: No
  Sender: FDA-Public Use
  Company Number: US-PERRIGO-19US003751

PATIENT
  Age: 72 Year
  Sex: Male
  Weight: 86.17 kg

DRUGS (2)
  1. MINOXIDIL. [Suspect]
     Active Substance: MINOXIDIL
     Indication: OFF LABEL USE
     Dosage: MORE THAN 1 ML, NIGHTLY
     Route: 061
     Dates: end: 2017
  2. MINOXIDIL. [Suspect]
     Active Substance: MINOXIDIL
     Dosage: MORE THAN 1 ML, NIGHTLY
     Route: 061
     Dates: start: 2019

REACTIONS (3)
  - Alopecia [Not Recovered/Not Resolved]
  - Off label use [Unknown]
  - Expired product administered [Unknown]

NARRATIVE: CASE EVENT DATE: 2019
